FAERS Safety Report 24428614 (Version 1)
Quarter: 2024Q4

REPORT INFORMATION
  Report Type: Spontaneous
  Country: PL (occurrence: PL)
  Receive Date: 20241011
  Receipt Date: 20241011
  Transmission Date: 20250115
  Serious: Yes (Death, Hospitalization, Other)
  Sender: AMGEN
  Company Number: PL-AMGEN-POLSP2024200912

PATIENT
  Age: 40 Week
  Sex: Male
  Weight: 3.36 kg

DRUGS (5)
  1. SODIUM PHENYLBUTYRATE [Suspect]
     Active Substance: SODIUM PHENYLBUTYRATE
     Indication: Hyperammonaemia
     Dosage: UNK
  2. SODIUM BENZOATE [Concomitant]
     Active Substance: SODIUM BENZOATE
  3. ARGININE [Concomitant]
     Active Substance: ARGININE
     Dosage: UNK
     Route: 042
  4. ARGININE [Concomitant]
     Active Substance: ARGININE
     Dosage: UNK
     Route: 048
  5. ARGININE [Concomitant]
     Active Substance: ARGININE
     Dosage: UNK

REACTIONS (10)
  - Death [Fatal]
  - Multiple organ dysfunction syndrome [Unknown]
  - Coma [Unknown]
  - Encephalopathy [Unknown]
  - Microcephaly [Unknown]
  - Oroticaciduria [Unknown]
  - Pneumonia [Unknown]
  - General physical health deterioration [Unknown]
  - Central nervous system injury [Unknown]
  - Ornithine transcarbamoylase deficiency [Unknown]
